FAERS Safety Report 9245011 (Version 1)
Quarter: 2013Q2

REPORT INFORMATION
  Report Type: Spontaneous
  Country: FR (occurrence: FR)
  Receive Date: 20130422
  Receipt Date: 20130422
  Transmission Date: 20140414
  Serious: Yes (Hospitalization)
  Sender: FDA-Public Use
  Company Number: FR-JNJFOC-20130405870

PATIENT
  Age: 83 Year
  Sex: Female

DRUGS (7)
  1. HALDOL [Suspect]
     Indication: ABNORMAL BEHAVIOUR
     Dosage: 2 MG/ML : 5 DROPS A DAY
     Route: 048
     Dates: end: 20120511
  2. PAROXETINE [Concomitant]
     Indication: PRODUCT USED FOR UNKNOWN INDICATION
     Route: 048
  3. LEVOTHYROX [Concomitant]
     Indication: PRODUCT USED FOR UNKNOWN INDICATION
     Route: 048
  4. FLECAINE [Concomitant]
     Indication: PRODUCT USED FOR UNKNOWN INDICATION
     Route: 048
  5. KARDEGIC [Concomitant]
     Indication: PRODUCT USED FOR UNKNOWN INDICATION
     Route: 048
  6. MODOPAR [Concomitant]
     Indication: PRODUCT USED FOR UNKNOWN INDICATION
     Dosage: 100MG/25MG
     Route: 048
     Dates: start: 2012
  7. MODOPAR [Concomitant]
     Indication: PRODUCT USED FOR UNKNOWN INDICATION
     Dosage: 50MG/12.5MG
     Route: 048
     Dates: start: 2010

REACTIONS (4)
  - Fall [Recovered/Resolved]
  - Head injury [Unknown]
  - Orthostatic hypotension [Recovered/Resolved]
  - Extrapyramidal disorder [Recovered/Resolved]
